FAERS Safety Report 16724181 (Version 8)
Quarter: 2021Q1

REPORT INFORMATION
  Report Type: Report from Study
  Country: TR (occurrence: TR)
  Receive Date: 20190821
  Receipt Date: 20210217
  Transmission Date: 20210419
  Serious: Yes (Death, Hospitalization)
  Sender: FDA-Public Use
  Company Number: TR-ROCHE-2383671

PATIENT
  Age: 78 Year
  Sex: Female
  Weight: 70 kg

DRUGS (38)
  1. DEBRIDAT [Concomitant]
     Active Substance: TRIMEBUTINE MALEATE
     Indication: ABDOMINAL DISTENSION
     Route: 048
     Dates: start: 20190529
  2. POTASSIUM CHLORIDE. [Concomitant]
     Active Substance: POTASSIUM CHLORIDE
     Indication: HYPOKALAEMIA
     Route: 042
     Dates: start: 20190709, end: 20190709
  3. EFERMAG [Concomitant]
     Indication: HYPOMAGNESAEMIA
     Route: 048
     Dates: start: 20190710, end: 20190710
  4. FILGRASTIM [Concomitant]
     Active Substance: FILGRASTIM
     Indication: VOMITING
     Route: 058
     Dates: start: 20190719, end: 20190721
  5. LEFOX [Concomitant]
     Indication: PNEUMONIA
     Route: 042
     Dates: start: 20190815, end: 20190815
  6. HIPERSAR [Concomitant]
     Indication: HYPERTENSION
     Route: 048
     Dates: start: 2004
  7. PANTO (TURKEY) [Concomitant]
     Route: 048
     Dates: start: 201904
  8. AVIL [Concomitant]
     Active Substance: PHENIRAMINE
     Route: 042
     Dates: start: 20190712, end: 20190712
  9. MIKOSTATIN [Concomitant]
     Active Substance: NYSTATIN
     Indication: ORAL CANDIDIASIS
     Route: 048
     Dates: start: 20190710
  10. PANTOZOL [Concomitant]
     Active Substance: PANTOPRAZOLE SODIUM
     Indication: DYSPEPSIA
     Route: 042
     Dates: start: 20190708, end: 20190710
  11. ONDAREN [Concomitant]
     Indication: NAUSEA
     Route: 042
     Dates: start: 20190815, end: 20190815
  12. BENZYDEX [Concomitant]
     Indication: MUCOSAL INFLAMMATION
     Route: 048
     Dates: start: 20190710
  13. SANELOC [Concomitant]
     Active Substance: METOPROLOL
     Route: 042
     Dates: start: 20190708, end: 20190710
  14. CARDENOR [Concomitant]
     Indication: HYPOTENSION
     Route: 042
     Dates: start: 20190814, end: 20190815
  15. ECOPIRIN [Concomitant]
     Active Substance: ASPIRIN
     Route: 048
     Dates: start: 2017
  16. PAROL [Concomitant]
     Active Substance: ACETAMINOPHEN
     Route: 048
     Dates: start: 20190712, end: 20190712
  17. PAROL [Concomitant]
     Active Substance: ACETAMINOPHEN
     Route: 048
     Dates: start: 20190801, end: 20190801
  18. DOXORUBICIN [Suspect]
     Active Substance: DOXORUBICIN
     Indication: DIFFUSE LARGE B-CELL LYMPHOMA
     Dosage: DATE OF MOST RECENT DOSE ADMINISTERED PRIOR TO SAE ONSET: 01/AUG/2019 (86 MG)
     Route: 042
     Dates: start: 20190510
  19. VASOSERC [Concomitant]
     Indication: DIZZINESS
     Route: 048
     Dates: start: 2004
  20. LOMOTIL (TURKEY) [Concomitant]
     Indication: DIARRHOEA
     Route: 048
     Dates: start: 20190626
  21. TEVAGRASTIM [Concomitant]
     Active Substance: FILGRASTIM
     Indication: NEUTROPENIA
     Route: 042
     Dates: start: 20190814, end: 20190814
  22. UNACEFIN [Concomitant]
     Indication: PNEUMONIA
     Route: 042
     Dates: start: 20190814, end: 20190814
  23. PLACEBO [Suspect]
     Active Substance: UNSPECIFIED INGREDIENT
     Indication: DIFFUSE LARGE B-CELL LYMPHOMA
     Dosage: DATE OF MOST RECENT DOSE ADMINISTERED PRIOR TO SAE ONSET: 01/AUG/2019
     Route: 042
     Dates: start: 20190510
  24. VIREAD [Concomitant]
     Active Substance: TENOFOVIR DISOPROXIL FUMARATE
     Route: 048
     Dates: start: 20190426
  25. CEDRINA [Concomitant]
     Indication: INSOMNIA
     Route: 048
     Dates: start: 2017
  26. NEURONTIN [Concomitant]
     Active Substance: GABAPENTIN
     Indication: NEURALGIA
     Route: 048
     Dates: start: 20190627
  27. EMOJECT [Concomitant]
     Indication: VOMITING
     Route: 042
     Dates: start: 20190710, end: 20190710
  28. POLATUZUMAB VEDOTIN. [Suspect]
     Active Substance: POLATUZUMAB VEDOTIN
     Indication: DIFFUSE LARGE B-CELL LYMPHOMA
     Dosage: DATE OF MOST RECENT DOSE ADMINISTERED PRIOR TO SAE ONSET: 01/AUG/2019
     Route: 042
     Dates: start: 20190510
  29. PREDNISONE. [Suspect]
     Active Substance: PREDNISONE
     Indication: DIFFUSE LARGE B-CELL LYMPHOMA
     Dosage: ON DAYS 1?5 OF EVERY 21?DAY CYCLE FOR 6 CYCLES?DATE OF MOST RECENT DOSE ADMINISTERED PRIOR TO SAE ON
     Route: 048
     Dates: start: 20190509
  30. NEXIUM [Concomitant]
     Active Substance: ESOMEPRAZOLE MAGNESIUM
     Indication: DYSPEPSIA
     Route: 048
     Dates: start: 20190710
  31. AVITAZ [Concomitant]
     Indication: FEBRILE NEUTROPENIA
     Route: 042
     Dates: start: 20190630, end: 20190710
  32. MEROSID [Concomitant]
     Indication: PNEUMONIA
     Route: 042
     Dates: start: 20190815, end: 20190815
  33. RITUXIMAB. [Suspect]
     Active Substance: RITUXIMAB
     Indication: DIFFUSE LARGE B-CELL LYMPHOMA
     Dosage: DATE OF MOST RECENT DOSE ADMINISTERED PRIOR TO SAE ONSET: 01/AUG/2019 (645 MG)
     Route: 042
     Dates: start: 20190509
  34. CYCLOPHOSPHAMIDE. [Suspect]
     Active Substance: CYCLOPHOSPHAMIDE
     Indication: DIFFUSE LARGE B-CELL LYMPHOMA
     Dosage: DATE OF MOST RECENT DOSE ADMINISTERED PRIOR TO SAE ONSET: 01/AUG/2019 (1290 MG)
     Route: 042
     Dates: start: 20190510
  35. BELOC (TURKEY) [Concomitant]
     Indication: PALPITATIONS
     Route: 048
     Dates: start: 20190412
  36. KYTRIL [Concomitant]
     Active Substance: GRANISETRON HYDROCHLORIDE
     Route: 048
     Dates: start: 20190511
  37. POTASSIUM CHLORIDE. [Concomitant]
     Active Substance: POTASSIUM CHLORIDE
     Route: 042
     Dates: start: 20190815, end: 20190815
  38. PROGAS [Concomitant]
     Indication: GASTRITIS
     Route: 042
     Dates: start: 20190814, end: 20190814

REACTIONS (1)
  - Acute kidney injury [Fatal]

NARRATIVE: CASE EVENT DATE: 20190808
